FAERS Safety Report 13721209 (Version 1)
Quarter: 2017Q3

REPORT INFORMATION
  Report Type: Spontaneous
  Country: US (occurrence: US)
  Receive Date: 20170705
  Receipt Date: 20170705
  Transmission Date: 20171127
  Serious: Yes (Other)
  Sender: FDA-Public Use
  Company Number: None

PATIENT
  Age: 74 Year
  Sex: Female
  Weight: 94.5 kg

DRUGS (8)
  1. FENOFIBRATE. [Suspect]
     Active Substance: FENOFIBRATE
     Indication: BLOOD CHOLESTEROL INCREASED
     Dosage: ?          OTHER STRENGTH:MG;QUANTITY:1 TABLET(S);?
     Route: 048
     Dates: start: 20170610, end: 20170630
  2. LASIX [Concomitant]
     Active Substance: FUROSEMIDE
  3. SYNTHROID [Concomitant]
     Active Substance: LEVOTHYROXINE SODIUM
  4. INSULIN [Concomitant]
     Active Substance: INSULIN NOS
  5. BENFOTAMINE (B1) [Concomitant]
  6. EQUIS [Concomitant]
  7. B-50 [Concomitant]
  8. VERAPMIL [Concomitant]

REACTIONS (2)
  - Gait disturbance [None]
  - Arthralgia [None]

NARRATIVE: CASE EVENT DATE: 20170628
